FAERS Safety Report 5673320-0 (Version None)
Quarter: 2008Q1

REPORT INFORMATION
  Report Type: 
  Country: None (occurrence: None)
  Receive Date: 20080319
  Receipt Date: 20080305
  Transmission Date: 20080703
  Serious: Yes (Hospitalization)
  Sender: FDA-Public Use
  Company Number: JP-BAXTER-2007BH005972

PATIENT
  Sex: Male

DRUGS (4)
  1. EXTRANEAL [Suspect]
     Indication: RENAL FAILURE CHRONIC
     Route: 033
     Dates: end: 20070101
  2. DIANEAL [Concomitant]
     Indication: RENAL FAILURE CHRONIC
     Route: 033
  3. HUMACART-N [Concomitant]
     Indication: DIABETES MELLITUS
     Dosage: DOSE UNIT:UNKNOWN
     Route: 065
  4. HUMACART-R [Concomitant]
     Indication: DIABETES MELLITUS
     Dosage: DOSE UNIT:UNKNOWN
     Route: 065

REACTIONS (3)
  - DEVICE INTERACTION [None]
  - HYPOGLYCAEMIA [None]
  - LOSS OF CONSCIOUSNESS [None]
